FAERS Safety Report 10472303 (Version 1)
Quarter: 2014Q3

REPORT INFORMATION
  Report Type: Spontaneous
  Country: DE (occurrence: DE)
  Receive Date: 20140924
  Receipt Date: 20140924
  Transmission Date: 20150326
  Serious: Yes (Death, Congenital Anomaly)
  Sender: FDA-Public Use
  Company Number: DE-TEVA-511018GER

PATIENT
  Age: 0 Year
  Sex: Male
  Weight: 2.4 kg

DRUGS (1)
  1. LEVETIRACETAM. [Suspect]
     Active Substance: LEVETIRACETAM
     Indication: EPILEPSY
     Dosage: 2000 MILLIGRAM DAILY; THE SUSPECT MEDICATION WAS TAKEN BY THE FATHER
     Route: 065
     Dates: start: 20130716, end: 20131014

REACTIONS (3)
  - Congenital hydrocephalus [Not Recovered/Not Resolved]
  - Foetal death [Fatal]
  - Pregnancy of partner [Unknown]

NARRATIVE: CASE EVENT DATE: 201402
